FAERS Safety Report 13113265 (Version 2)
Quarter: 2017Q1

REPORT INFORMATION
  Report Type: Spontaneous
  Country: BR (occurrence: BR)
  Receive Date: 20170113
  Receipt Date: 20170220
  Transmission Date: 20170428
  Serious: Yes (Other)
  Sender: FDA-Public Use
  Company Number: BR-GLAXOSMITHKLINE-BR2017GSK002273

PATIENT
  Sex: Male

DRUGS (3)
  1. AEROLIN [Suspect]
     Active Substance: ALBUTEROL
     Indication: PRODUCT USED FOR UNKNOWN INDICATION
     Dosage: UNK, 200 DOSES FOR 20 YEARS
     Route: 055
  2. AEROLIN [Suspect]
     Active Substance: ALBUTEROL
     Dosage: UNK
  3. AEROLIN [Suspect]
     Active Substance: ALBUTEROL
     Dosage: UNK

REACTIONS (8)
  - Dry throat [Unknown]
  - Product quality issue [Unknown]
  - Throat irritation [Unknown]
  - Cough [Unknown]
  - Ill-defined disorder [Unknown]
  - Dry lung syndrome [Unknown]
  - Pneumonia [Unknown]
  - Overdose [Recovered/Resolved]
